FAERS Safety Report 6367470-3 (Version None)
Quarter: 2009Q3

REPORT INFORMATION
  Report Type: 
  Country: None (occurrence: None)
  Receive Date: 20090921
  Receipt Date: 20090910
  Transmission Date: 20100115
  Serious: Yes (Hospitalization)
  Sender: FDA-Public Use
  Company Number: B0593915A

PATIENT
  Sex: Male
  Weight: 58 kg

DRUGS (3)
  1. MELPHALAN [Suspect]
     Indication: MULTIPLE MYELOMA
     Dosage: 10MG PER DAY
     Route: 048
     Dates: start: 20080220
  2. BLINDED TRIAL MEDICATION [Suspect]
     Indication: MULTIPLE MYELOMA
     Dosage: 2CAP PER DAY
     Route: 048
     Dates: start: 20080220
  3. PREDNISONE [Suspect]
     Indication: MULTIPLE MYELOMA
     Route: 048
     Dates: start: 20080220

REACTIONS (3)
  - MALAISE [None]
  - PYREXIA [None]
  - STREPTOCOCCAL SEPSIS [None]
